FAERS Safety Report 16785004 (Version 1)
Quarter: 2019Q3

REPORT INFORMATION
  Report Type: Spontaneous
  Country: RU (occurrence: RU)
  Receive Date: 20190909
  Receipt Date: 20190909
  Transmission Date: 20191005
  Serious: Yes (Hospitalization)
  Sender: FDA-Public Use
  Company Number: RU-SUN PHARMACEUTICAL INDUSTRIES LTD-2019R1-219524

PATIENT
  Age: 56 Year
  Sex: Female
  Weight: 70 kg

DRUGS (1)
  1. PYLOBACT AM [Suspect]
     Active Substance: AMOXICILLIN\CLARITHROMYCIN\OMEPRAZOLE
     Indication: HELICOBACTER GASTRITIS
     Dosage: 10 MILLIGRAM, DAILY
     Route: 048
     Dates: start: 20190805, end: 20190811

REACTIONS (4)
  - Body temperature increased [Recovering/Resolving]
  - Asthenia [Recovering/Resolving]
  - Increased bronchial secretion [Recovering/Resolving]
  - Cough [Recovering/Resolving]

NARRATIVE: CASE EVENT DATE: 20190811
